FAERS Safety Report 9224478 (Version 1)
Quarter: 2013Q2

REPORT INFORMATION
  Report Type: Report from Study
  Country: US (occurrence: US)
  Receive Date: 20130411
  Receipt Date: 20130411
  Transmission Date: 20140414
  Serious: Yes (Death)
  Sender: FDA-Public Use
  Company Number: US-TEVA-397489USA

PATIENT
  Age: 77 Year
  Sex: Male

DRUGS (1)
  1. TREANDA [Suspect]
     Indication: LYMPHOMA
     Dates: start: 20120905

REACTIONS (1)
  - Death [Fatal]
